FAERS Safety Report 22361323 (Version 2)
Quarter: 2023Q2

REPORT INFORMATION
  Report Type: Spontaneous
  Country: GB (occurrence: GB)
  Receive Date: 20230524
  Receipt Date: 20230605
  Transmission Date: 20230721
  Serious: Yes (Other)
  Sender: FDA-Public Use
  Company Number: GB-THERAMEX-2023000640

PATIENT
  Age: 52 Year
  Sex: Female

DRUGS (4)
  1. MIRENA [Suspect]
     Active Substance: LEVONORGESTREL
     Indication: Product used for unknown indication
     Dosage: 20?G/DAY
     Route: 015
  2. MIRENA [Suspect]
     Active Substance: LEVONORGESTREL
     Indication: Product used for unknown indication
     Dosage: 20?G/DAY
     Route: 015
  3. ESTRADIOL\NORETHINDRONE ACETATE [Suspect]
     Active Substance: ESTRADIOL\NORETHINDRONE ACETATE
     Indication: Hormone replacement therapy
     Dosage: 4 DF, UNK
     Dates: start: 20230413, end: 20230426
  4. BIJUVA [Suspect]
     Active Substance: ESTRADIOL\PROGESTERONE

REACTIONS (31)
  - Headache [Unknown]
  - Dizziness [Unknown]
  - Mood altered [Unknown]
  - Fatigue [Unknown]
  - Back pain [Unknown]
  - Abdominal pain [Unknown]
  - Dyspepsia [Unknown]
  - Pelvic pain [Unknown]
  - Vaginal discharge [Unknown]
  - Vaginal haemorrhage [Recovered/Resolved]
  - Pain in extremity [Unknown]
  - Myalgia [Unknown]
  - Insomnia [Unknown]
  - Amnesia [Unknown]
  - Vulvovaginal burning sensation [Unknown]
  - Visual impairment [Unknown]
  - Abdominal discomfort [Unknown]
  - Abdominal tenderness [Unknown]
  - Heavy menstrual bleeding [Recovered/Resolved]
  - Dizziness [Unknown]
  - Fatigue [Unknown]
  - Poor quality sleep [Unknown]
  - Blood pressure fluctuation [Not Recovered/Not Resolved]
  - Chest pain [Unknown]
  - Palpitations [Unknown]
  - Visual impairment [Recovering/Resolving]
  - Brain fog [Unknown]
  - Depressed mood [Unknown]
  - Hypertension [Not Recovered/Not Resolved]
  - Malaise [Unknown]
  - Intentional product misuse [Unknown]

NARRATIVE: CASE EVENT DATE: 20230511
